FAERS Safety Report 25648633 (Version 1)
Quarter: 2025Q3

REPORT INFORMATION
  Report Type: Spontaneous
  Country: EU (occurrence: EU)
  Receive Date: 20250806
  Receipt Date: 20250806
  Transmission Date: 20251021
  Serious: Yes (Other)
  Sender: ACCORD
  Company Number: None

PATIENT
  Age: 34 Year
  Sex: Male

DRUGS (4)
  1. QUETIAPINE FUMARATE [Suspect]
     Active Substance: QUETIAPINE FUMARATE
     Indication: Schizoaffective disorder
     Route: 048
  2. LITHIUM [Concomitant]
     Active Substance: LITHIUM
  3. ZOPICLONE [Concomitant]
     Active Substance: ZOPICLONE
  4. LORAZEPAM [Concomitant]
     Active Substance: LORAZEPAM

REACTIONS (1)
  - Libido increased [Recovered/Resolved]
